FAERS Safety Report 23288314 (Version 1)
Quarter: 2023Q4

REPORT INFORMATION
  Report Type: Spontaneous
  Country: US (occurrence: US)
  Receive Date: 20231212
  Receipt Date: 20231212
  Transmission Date: 20240109
  Serious: No
  Sender: FDA-Public Use
  Company Number: US-FERRINGPH-2023FE01998

PATIENT
  Sex: Female

DRUGS (1)
  1. MENOPUR [Suspect]
     Active Substance: FOLLITROPIN\LUTEINIZING HORMONE
     Indication: In vitro fertilisation
     Route: 065

REACTIONS (1)
  - Injection site pain [Unknown]
